FAERS Safety Report 6426292-5 (Version None)
Quarter: 2009Q4

REPORT INFORMATION
  Report Type: 
  Country: None (occurrence: None)
  Receive Date: 20091104
  Receipt Date: 20091026
  Transmission Date: 20100525
  Serious: Yes (Other)
  Sender: FDA-Public Use
  Company Number: BR-ROCHE-664735

PATIENT
  Age: 70 Year
  Sex: Female
  Weight: 50 kg

DRUGS (9)
  1. RIVOTRIL [Suspect]
     Indication: SLEEP DISORDER THERAPY
     Dosage: DOSE: FROM 1-4 TABLETS AT NIGHT, OTHER INDICATION: TO CALM
     Route: 048
     Dates: start: 20091012
  2. DIAZEPAM [Suspect]
     Indication: DRUG USE FOR UNKNOWN INDICATION
     Route: 065
     Dates: start: 20090901, end: 20091011
  3. OMEPRAZOLE [Concomitant]
     Dosage: DOSE: 40 MG
     Route: 048
  4. BROMOPRIDE [Concomitant]
  5. ALUMINUM HYDROXIDE GEL [Concomitant]
     Dosage: 1 DOSE HALF HOUR BEFORE MEALS
  6. ENALAPRIL [Concomitant]
     Dosage: DOSE: 10 MG
     Route: 048
  7. PROPRANOLOL [Concomitant]
     Dosage: DOSE: 40 MG
     Route: 048
  8. PHENYTOIN [Concomitant]
     Dosage: DOSE: 1 TABLET ON MORNING AND ONE AT NIGHT
     Route: 048
  9. CINNARIZINE [Concomitant]
     Dosage: DOSE: 75 MG
     Route: 048

REACTIONS (8)
  - AGNOSIA [None]
  - CACHEXIA [None]
  - DRUG INEFFECTIVE [None]
  - DYSSTASIA [None]
  - INSOMNIA [None]
  - LAZINESS [None]
  - SEDATION [None]
  - SLEEP DISORDER [None]
